FAERS Safety Report 9961558 (Version 1)
Quarter: 2014Q1

REPORT INFORMATION
  Report Type: Spontaneous
  Country: US (occurrence: US)
  Receive Date: 20140305
  Receipt Date: 20140305
  Transmission Date: 20141002
  Serious: Yes (Other)
  Sender: FDA-Public Use
  Company Number: US-ALLERGAN-1403632US

PATIENT
  Age: 90 Year
  Sex: Female

DRUGS (1)
  1. RESTASIS [Suspect]
     Indication: PRODUCT USED FOR UNKNOWN INDICATION

REACTIONS (2)
  - Hip fracture [Unknown]
  - Fall [Unknown]
